FAERS Safety Report 23645053 (Version 1)
Quarter: 2024Q1

REPORT INFORMATION
  Report Type: Spontaneous
  Country: US (occurrence: US)
  Receive Date: 20240318
  Receipt Date: 20240318
  Transmission Date: 20240410
  Serious: No
  Sender: FDA-Public Use
  Company Number: US-SMITH AND NEPHEW, INC-2023SMT00088

PATIENT
  Age: 58 Year
  Sex: Male

DRUGS (2)
  1. COLLAGENASE SANTYL [Suspect]
     Active Substance: COLLAGENASE CLOSTRIDIUM HISTOLYTICUM
     Indication: Diabetic foot
     Dosage: UNK, CHANGING EVERY 48 HOURS (EVERY 2 DAYS)
     Route: 061
     Dates: start: 202312
  2. COLLAGENASE SANTYL [Suspect]
     Active Substance: COLLAGENASE CLOSTRIDIUM HISTOLYTICUM
     Dosage: UNK, 1X/DAY
     Route: 061

REACTIONS (2)
  - Wound complication [Not Recovered/Not Resolved]
  - Inappropriate schedule of product administration [Recovered/Resolved]

NARRATIVE: CASE EVENT DATE: 20231201
